FAERS Safety Report 25755426 (Version 1)
Quarter: 2025Q3

REPORT INFORMATION
  Report Type: Spontaneous
  Country: US (occurrence: US)
  Receive Date: 20250903
  Receipt Date: 20250903
  Transmission Date: 20251020
  Serious: Yes (Other)
  Sender: SANOFI AVENTIS
  Company Number: US-SA-2025SA260667

PATIENT
  Age: 67 Year
  Sex: Female

DRUGS (14)
  1. DUPIXENT [Suspect]
     Active Substance: DUPILUMAB
     Indication: Dermatitis atopic
     Route: 058
     Dates: start: 202506, end: 202506
  2. Apple cider [Concomitant]
  3. BIOTIN [Concomitant]
     Active Substance: BIOTIN
  4. COENZYME Q10 [Concomitant]
     Active Substance: DIETARY SUPPLEMENT\UBIDECARENONE
  5. MAGNESIUM [Concomitant]
     Active Substance: MAGNESIUM
  6. PROLIA [Concomitant]
     Active Substance: DENOSUMAB
  7. HERBALS\SAW PALMETTO [Concomitant]
     Active Substance: HERBALS\SAW PALMETTO
  8. VITAMIN D [Concomitant]
     Active Substance: VITAMIN D NOS
  9. DULOXETINE HYDROCHLORIDE [Concomitant]
     Active Substance: DULOXETINE HYDROCHLORIDE
  10. HYDROCHLOROTHIAZIDE [Concomitant]
     Active Substance: HYDROCHLOROTHIAZIDE
  11. HYDROXYCHLOROQUINE [Concomitant]
     Active Substance: HYDROXYCHLOROQUINE
  12. LOSARTAN POTASSIUM [Concomitant]
     Active Substance: LOSARTAN POTASSIUM
  13. REMICADE [Concomitant]
     Active Substance: INFLIXIMAB
  14. ROSUVASTATIN [Concomitant]
     Active Substance: ROSUVASTATIN

REACTIONS (5)
  - Cataract [Unknown]
  - Skin exfoliation [Unknown]
  - Pruritus [Unknown]
  - Therapeutic response shortened [Unknown]
  - Injection site pain [Unknown]
